FAERS Safety Report 12932247 (Version 3)
Quarter: 2016Q4

REPORT INFORMATION
  Report Type: Spontaneous
  Country: US (occurrence: US)
  Receive Date: 20161111
  Receipt Date: 20161121
  Transmission Date: 20170207
  Serious: Yes (Other)
  Sender: FDA-Public Use
  Company Number: US-JNJFOC-20110806628

PATIENT
  Age: 38 Year

DRUGS (1)
  1. LEVAQUIN [Suspect]
     Active Substance: LEVOFLOXACIN
     Indication: BACTERIAL INFECTION
     Route: 048
     Dates: start: 200603

REACTIONS (8)
  - Cardiovascular disorder [Unknown]
  - Skin injury [Unknown]
  - Hypoacusis [Unknown]
  - Neuropsychiatric symptoms [Unknown]
  - Musculoskeletal injury [Unknown]
  - Tendon injury [Unknown]
  - Visual impairment [Unknown]
  - Neuropathy peripheral [Unknown]

NARRATIVE: CASE EVENT DATE: 200603
